FAERS Safety Report 17869069 (Version 2)
Quarter: 2021Q3

REPORT INFORMATION
  Report Type: Report from Study
  Country: US (occurrence: US)
  Receive Date: 20200608
  Receipt Date: 20210831
  Transmission Date: 20211014
  Serious: No
  Sender: FDA-Public Use
  Company Number: US-ACADIA PHARMACEUTICALS INC.-ACA-2020-PIM-001560

PATIENT
  Age: 73 Year
  Sex: Male

DRUGS (10)
  1. AMLODIPINE [Concomitant]
     Active Substance: AMLODIPINE BESYLATE
  2. QUETIAPINE. [Concomitant]
     Active Substance: QUETIAPINE
  3. NUPLAZID [Suspect]
     Active Substance: PIMAVANSERIN TARTRATE
     Indication: PARKINSON^S DISEASE PSYCHOSIS
     Dosage: 34 MILLIGRAM, QD
     Route: 048
     Dates: start: 202005, end: 20200509
  4. NUPLAZID [Suspect]
     Active Substance: PIMAVANSERIN TARTRATE
     Indication: DELUSION
  5. DULOXETINE. [Concomitant]
     Active Substance: DULOXETINE
  6. TAMSULOSIN [Concomitant]
     Active Substance: TAMSULOSIN
  7. NUPLAZID [Suspect]
     Active Substance: PIMAVANSERIN TARTRATE
     Indication: HALLUCINATION
     Dosage: 34 MILLIGRAM, QD
     Route: 048
     Dates: start: 20200529
  8. ENTACAPONE. [Concomitant]
     Active Substance: ENTACAPONE
  9. FINASTERIDE. [Concomitant]
     Active Substance: FINASTERIDE
  10. RYTARY [Concomitant]
     Active Substance: CARBIDOPA\LEVODOPA

REACTIONS (4)
  - Somnolence [Unknown]
  - Dyspepsia [Recovered/Resolved]
  - Drug intolerance [Unknown]
  - Hypersomnia [Unknown]

NARRATIVE: CASE EVENT DATE: 202005
